FAERS Safety Report 23606799 (Version 3)
Quarter: 2024Q2

REPORT INFORMATION
  Report Type: Report from Study
  Country: CA (occurrence: CA)
  Receive Date: 20240307
  Receipt Date: 20240408
  Transmission Date: 20240716
  Serious: Yes (Hospitalization, Other)
  Sender: FDA-Public Use
  Company Number: CA-ABBVIE-5669316

PATIENT
  Age: 58 Year
  Sex: Male
  Weight: 66 kg

DRUGS (11)
  1. GLECAPREVIR\PIBRENTASVIR [Suspect]
     Active Substance: GLECAPREVIR\PIBRENTASVIR
     Indication: Chronic hepatitis C
     Dosage: TIME INTERVAL: 0.33333333 DAYS: 100/40 MG TABLETS?LAST ADMIN DATE: 2024
     Route: 048
     Dates: start: 20240123
  2. MAGNESIUM [Concomitant]
     Active Substance: MAGNESIUM
     Indication: Product used for unknown indication
     Route: 048
     Dates: start: 2023
  3. ALPROZAM [Concomitant]
     Indication: Product used for unknown indication
     Dosage: TIME INTERVAL: 0.33333333 DAYS: 0.5 MG ?1 TABLET THRICE A DAY
     Route: 048
     Dates: start: 2023
  4. PROBENECID [Concomitant]
     Active Substance: PROBENECID
     Indication: Product used for unknown indication
     Dosage: 2 TABLETS TWICE A DAY
     Route: 048
     Dates: start: 2023
  5. FUROSEMIDE [Concomitant]
     Active Substance: FUROSEMIDE
     Indication: Product used for unknown indication
     Route: 048
     Dates: start: 2023
  6. CEFAZINE [Concomitant]
     Indication: Product used for unknown indication
     Route: 042
  7. SUBOXONE [Concomitant]
     Active Substance: BUPRENORPHINE HYDROCHLORIDE\NALOXONE HYDROCHLORIDE
     Indication: Product used for unknown indication
     Dosage: 3/2 MG
     Route: 060
     Dates: start: 2023
  8. SYNTHROID [Concomitant]
     Active Substance: LEVOTHYROXINE SODIUM
     Indication: Product used for unknown indication
     Route: 048
     Dates: start: 2023
  9. PANTOPRAZOLE SODIUM [Concomitant]
     Active Substance: PANTOPRAZOLE SODIUM
     Indication: Product used for unknown indication
     Route: 048
     Dates: start: 2023
  10. POTASSIUM [Concomitant]
     Active Substance: POTASSIUM
     Indication: Product used for unknown indication
     Dosage: 2 BY MOUTH
     Route: 048
     Dates: start: 2023
  11. SPIRONOLACTONE [Concomitant]
     Active Substance: SPIRONOLACTONE
     Indication: Product used for unknown indication

REACTIONS (8)
  - Withdrawal syndrome [Recovering/Resolving]
  - Asthenia [Recovering/Resolving]
  - Transfusion [Unknown]
  - Malaise [Unknown]
  - Weight decreased [Recovering/Resolving]
  - Lethargy [Recovering/Resolving]
  - Sepsis [Unknown]
  - Virilism [Unknown]

NARRATIVE: CASE EVENT DATE: 20240101
